FAERS Safety Report 7416850-3 (Version None)
Quarter: 2011Q2

REPORT INFORMATION
  Report Type: 
  Country: None (occurrence: None)
  Receive Date: 20110408
  Receipt Date: 20110329
  Transmission Date: 20111010
  Serious: Yes (Hospitalization)
  Sender: FDA-Public Use
  Company Number: 2011MA004097

PATIENT
  Age: 52 Year
  Sex: Female
  Weight: 113.3993 kg

DRUGS (20)
  1. APIDRA [Concomitant]
  2. DETROL [Concomitant]
  3. POTASSIUM [Concomitant]
  4. CYCLOSPORINE [Concomitant]
  5. AMITRIPTYLINE [Concomitant]
  6. SYMLIN [Suspect]
     Indication: TYPE 2 DIABETES MELLITUS
     Dosage: 180 MCG; QID; SC, 120 MCG; QID; SC, 60 MCG; QID; SC
     Dates: start: 20060101, end: 20110301
  7. SYMLIN [Suspect]
     Indication: TYPE 2 DIABETES MELLITUS
     Dosage: 180 MCG; QID; SC, 120 MCG; QID; SC, 60 MCG; QID; SC
     Dates: start: 20060101, end: 20060101
  8. SYMLIN [Suspect]
     Indication: TYPE 2 DIABETES MELLITUS
     Dosage: 180 MCG; QID; SC, 120 MCG; QID; SC, 60 MCG; QID; SC
     Dates: start: 20060101, end: 20060101
  9. CARVEDILOL [Concomitant]
  10. LOVAZA [Concomitant]
  11. COMBIGAN [Concomitant]
  12. SYMLIN [Suspect]
     Indication: TYPE 2 DIABETES MELLITUS
     Dosage: 30 MCG; QID; SC
     Route: 058
     Dates: start: 20110329
  13. LANTUS [Concomitant]
  14. CYMBALTA [Concomitant]
  15. LOTREL [Concomitant]
  16. PLAVIX [Concomitant]
  17. CHLORTHALIDONE [Concomitant]
  18. VITAMINS NOS [Concomitant]
  19. SYMLIN [Suspect]
     Indication: TYPE 2 DIABETES MELLITUS
     Dosage: ; QID; SC
     Route: 058
     Dates: start: 20110301, end: 20110301
  20. LASIX [Concomitant]

REACTIONS (16)
  - DRUG PRESCRIBING ERROR [None]
  - WEIGHT INCREASED [None]
  - NAUSEA [None]
  - FALL [None]
  - HEADACHE [None]
  - ECONOMIC PROBLEM [None]
  - DIZZINESS [None]
  - HEAD INJURY [None]
  - BLOOD GLUCOSE INCREASED [None]
  - SPEECH DISORDER [None]
  - DYSPNOEA [None]
  - APPENDICECTOMY [None]
  - ASTHENIA [None]
  - CHEST PAIN [None]
  - FEELING ABNORMAL [None]
  - NECK INJURY [None]
